FAERS Safety Report 9882187 (Version 1)
Quarter: 2014Q1

REPORT INFORMATION
  Report Type: Spontaneous
  Country: US (occurrence: None)
  Receive Date: 20140205
  Receipt Date: 20140205
  Transmission Date: 20141002
  Serious: Yes (Death)
  Sender: FDA-Public Use
  Company Number: IMP_07340_2014

PATIENT
  Age: 35 Year
  Sex: Male

DRUGS (8)
  1. ALPRAZOLAM [Suspect]
  2. PAROXETINE [Suspect]
  3. MORPHINE [Suspect]
  4. GABAPENTIN [Suspect]
     Route: 048
  5. HYDROXYZINE [Suspect]
     Route: 048
  6. TRAMADOL [Suspect]
  7. OMEPRAZOLE [Suspect]
     Route: 048
  8. LORAZEPAM [Suspect]

REACTIONS (4)
  - Poisoning [None]
  - Respiratory arrest [None]
  - Cardiac arrest [None]
  - Exposure via ingestion [None]
